FAERS Safety Report 8268113-4 (Version None)
Quarter: 2012Q2

REPORT INFORMATION
  Report Type: 
  Country: None (occurrence: None)
  Receive Date: 20120409
  Receipt Date: 20120329
  Transmission Date: 20120825
  Serious: Yes (Other)
  Sender: FDA-Public Use
  Company Number: US-ELI_LILLY_AND_COMPANY-US201011004482

PATIENT
  Sex: Female

DRUGS (6)
  1. VICODIN [Concomitant]
  2. MOBIC [Concomitant]
     Indication: ARTHRITIS
  3. FORTEO [Suspect]
     Dosage: 20 UG, QD
     Route: 065
  4. FORTEO [Suspect]
     Dosage: 20 UG, QD
     Route: 065
     Dates: end: 20120201
  5. FORTEO [Suspect]
     Indication: OSTEOPOROSIS
     Dosage: 20 UG, QD
     Route: 065
     Dates: start: 20100801
  6. FORTEO [Suspect]
     Dosage: 20 UG, QD
     Route: 065

REACTIONS (12)
  - BACK PAIN [None]
  - PAIN IN EXTREMITY [None]
  - MALAISE [None]
  - GAIT DISTURBANCE [None]
  - ARTHRALGIA [None]
  - OSTEOARTHRITIS [None]
  - BURNING SENSATION [None]
  - VIRAL INFECTION [None]
  - INFLUENZA LIKE ILLNESS [None]
  - DIABETES MELLITUS [None]
  - HEART TRANSPLANT [None]
  - PAIN [None]
